FAERS Safety Report 7650330-5 (Version None)
Quarter: 2011Q3

REPORT INFORMATION
  Report Type: 
  Country: None (occurrence: None)
  Receive Date: 20110727
  Receipt Date: 20110714
  Transmission Date: 20111222
  Serious: Yes (Life-Threatening, Disabling)
  Sender: FDA-Public Use
  Company Number: 2011-00270

PATIENT
  Age: 78 Year
  Sex: Male

DRUGS (7)
  1. ATORVASTATIN [Suspect]
     Indication: HYPERCHOLESTEROLAEMIA
     Dosage: 10 MG (10 MG), ORAL
     Route: 048
  2. OMEPRAZOLE [Concomitant]
  3. AMLODIPINE [Concomitant]
  4. LEVOTHYROXINE SODIUM [Concomitant]
  5. SIMVASTATIN [Suspect]
     Indication: HYPERCHOLESTEROLAEMIA
  6. NAPROXEN [Concomitant]
  7. ALLOPURINOL [Concomitant]

REACTIONS (3)
  - PULMONARY FIBROSIS [None]
  - IMMUNOGLOBULINS INCREASED [None]
  - INTERSTITIAL LUNG DISEASE [None]
